FAERS Safety Report 5233529-7 (Version None)
Quarter: 2007Q1

REPORT INFORMATION
  Report Type: 
  Country: None (occurrence: None)
  Receive Date: 20061208
  Receipt Date: 20060313
  Transmission Date: 20070707
  Serious: Yes (Other)
  Sender: FDA-Public Use
  Company Number: 2006UW04209

PATIENT
  Sex: Female

DRUGS (1)
  1. CRESTOR [Suspect]
     Dosage: 10 MG PO
     Route: 048

REACTIONS (5)
  - BREATH SOUNDS ABNORMAL [None]
  - CHILLS [None]
  - DYSKINESIA [None]
  - FEELING HOT [None]
  - HEADACHE [None]
